FAERS Safety Report 8197705-6 (Version None)
Quarter: 2012Q1

REPORT INFORMATION
  Report Type: 
  Country: None (occurrence: None)
  Receive Date: 20120309
  Receipt Date: 20120210
  Transmission Date: 20120608
  Serious: Yes (Life-Threatening, Hospitalization, Disabling, Other)
  Sender: FDA-Public Use
  Company Number: US-BAYER-2011-010710

PATIENT
  Sex: Female

DRUGS (1)
  1. BETASERON [Suspect]
     Indication: MULTIPLE SCLEROSIS
     Dosage: 0.3 MG, UNK
     Dates: end: 20091216

REACTIONS (22)
  - PAIN [None]
  - OEDEMA [None]
  - PYREXIA [None]
  - BLOOD PRESSURE INCREASED [None]
  - DEFORMITY [None]
  - INJECTION SITE INFLAMMATION [None]
  - BACTERIAL INFECTION [None]
  - DISABILITY [None]
  - ASTHENIA [None]
  - INJECTION SITE PAIN [None]
  - HYPERHIDROSIS [None]
  - CHILLS [None]
  - COGNITIVE DISORDER [None]
  - GAIT DISTURBANCE [None]
  - NAUSEA [None]
  - OEDEMA PERIPHERAL [None]
  - MALAISE [None]
  - NECROTISING FASCIITIS [None]
  - INJURY [None]
  - WHITE BLOOD CELL COUNT INCREASED [None]
  - ABSCESS [None]
  - ANXIETY [None]
